FAERS Safety Report 9753390 (Version 2)
Quarter: 2013Q4

REPORT INFORMATION
  Report Type: Spontaneous
  Country: US (occurrence: US)
  Receive Date: 20131213
  Receipt Date: 20131213
  Transmission Date: 20140711
  Serious: Yes (Other)
  Sender: FDA-Public Use
  Company Number: US-TEVA-406114USA

PATIENT
  Age: 35 Year
  Sex: Female
  Weight: 71.28 kg

DRUGS (2)
  1. PARAGARD 380A [Suspect]
     Indication: CONTRACEPTION
     Route: 015
     Dates: start: 20020126, end: 20130516
  2. ADDERALL [Concomitant]
     Indication: ATTENTION DEFICIT/HYPERACTIVITY DISORDER

REACTIONS (4)
  - Embedded device [Not Recovered/Not Resolved]
  - Device dislocation [Unknown]
  - Device breakage [Unknown]
  - Foot fracture [Unknown]
